FAERS Safety Report 10790953 (Version 6)
Quarter: 2015Q2

REPORT INFORMATION
  Report Type: Report from Study
  Country: GB (occurrence: GB)
  Receive Date: 20150212
  Receipt Date: 20150424
  Transmission Date: 20150821
  Serious: Yes (Hospitalization)
  Sender: FDA-Public Use
  Company Number: GB-GILEAD-2015-0136290

PATIENT
  Age: 76 Year
  Sex: Male
  Weight: 51.2 kg

DRUGS (9)
  1. OXYGEN. [Concomitant]
     Active Substance: OXYGEN
     Indication: DYSPNOEA EXERTIONAL
  2. CALCIUM CARBONATE. [Concomitant]
     Active Substance: CALCIUM CARBONATE
     Indication: BLOOD CALCIUM DECREASED
     Dosage: UNK
     Dates: start: 20150206
  3. IDELALISIB [Suspect]
     Active Substance: IDELALISIB
     Indication: CHRONIC LYMPHOCYTIC LEUKAEMIA
     Dosage: 100 MG, BID
     Route: 048
     Dates: start: 20140204, end: 20141203
  4. IDELALISIB [Suspect]
     Active Substance: IDELALISIB
     Dosage: 150 MG, BID
     Route: 048
     Dates: start: 20130709
  5. POTASSIUM BICARBONATE W/POTASSIUM CHLORIDE [Concomitant]
     Indication: HYPOKALAEMIA
     Dosage: UNK
  6. MEROPENEM. [Concomitant]
     Active Substance: MEROPENEM
     Indication: ANTIBIOTIC PROPHYLAXIS
     Dosage: UNK
     Dates: start: 20150205, end: 20150206
  7. SODIUM ACID PHOSPHATE              /00706601/ [Concomitant]
     Indication: BLOOD SODIUM DECREASED
     Dosage: UNK
  8. PARACETAMOL [Concomitant]
     Active Substance: ACETAMINOPHEN
     Indication: PAIN
     Dosage: UNK, PRN
     Dates: start: 20150205
  9. OXYGEN. [Concomitant]
     Active Substance: OXYGEN
     Indication: HYPOXIA
     Dosage: 2 L, UNK
     Route: 055

REACTIONS (2)
  - Decreased appetite [Not Recovered/Not Resolved]
  - Diarrhoea [Not Recovered/Not Resolved]

NARRATIVE: CASE EVENT DATE: 20150204
